FAERS Safety Report 18650965 (Version 2)
Quarter: 2020Q4

REPORT INFORMATION
  Report Type: Report from Study
  Country: ES (occurrence: ES)
  Receive Date: 20201222
  Receipt Date: 20201223
  Transmission Date: 20210114
  Serious: Yes (Life-Threatening, Other)
  Sender: FDA-Public Use
  Company Number: ES-GILEAD-2020-0510048

PATIENT
  Age: 45 Year
  Sex: Female

DRUGS (1)
  1. AXICABTAGENE CILOLEUCEL [Suspect]
     Active Substance: AXICABTAGENE CILOLEUCEL
     Indication: LYMPHOMA
     Dosage: 0.4-2 X 10E6 VIABLE CELLS
     Route: 042
     Dates: start: 20201113, end: 20201113

REACTIONS (5)
  - Neutropenia [Recovering/Resolving]
  - Bradyphrenia [Recovering/Resolving]
  - Pyrexia [Unknown]
  - Cytokine release syndrome [Unknown]
  - Slow speech [Recovering/Resolving]

NARRATIVE: CASE EVENT DATE: 20201116
